FAERS Safety Report 11279974 (Version 1)
Quarter: 2015Q3

REPORT INFORMATION
  Report Type: Other
  Country: IT (occurrence: IT)
  Receive Date: 20150717
  Receipt Date: 20150717
  Transmission Date: 20151125
  Serious: Yes (Other)
  Sender: FDA-Public Use
  Company Number: IT-MYLANLABS-2015M1023023

PATIENT

DRUGS (3)
  1. TRITTICO [Concomitant]
     Active Substance: TRAZODONE HYDROCHLORIDE
     Indication: PRODUCT USED FOR UNKNOWN INDICATION
     Dosage: 150 MG, UNK
     Route: 048
  2. QUETIAPINA MYLAN GENERICS [Suspect]
     Active Substance: QUETIAPINE
     Indication: CONDUCT DISORDER
     Dosage: 50 MG, QD
     Route: 048
     Dates: start: 20150420, end: 20150510
  3. ELOPRAM                            /00582603/ [Concomitant]
     Indication: PRODUCT USED FOR UNKNOWN INDICATION
     Dosage: 20 MG, UNK
     Route: 048

REACTIONS (4)
  - Product substitution issue [Unknown]
  - Delusion [Recovered/Resolved]
  - Abnormal behaviour [Recovered/Resolved]
  - Drug ineffective [Recovered/Resolved]

NARRATIVE: CASE EVENT DATE: 20150420
